FAERS Safety Report 13043030 (Version 11)
Quarter: 2018Q2

REPORT INFORMATION
  Report Type: Spontaneous
  Country: JP (occurrence: JP)
  Receive Date: 20161219
  Receipt Date: 20180618
  Transmission Date: 20180711
  Serious: Yes (Death, Hospitalization, Other)
  Sender: FDA-Public Use
  Company Number: JP-PFIZER INC-2016580235

PATIENT
  Age: 76 Year
  Sex: Female
  Weight: 47 kg

DRUGS (15)
  1. CAMPTO [Suspect]
     Active Substance: IRINOTECAN
     Dosage: 100 MG, 1X/DAY
     Route: 041
     Dates: start: 20120815, end: 20120815
  2. CALCIUM FOLINATE [Suspect]
     Active Substance: LEUCOVORIN CALCIUM
     Indication: COLON CANCER METASTATIC
     Dosage: 250 MG, UNK (DAY 1)
  3. SOL-MELCORT [Concomitant]
     Active Substance: METHYLPREDNISOLONE SODIUM SUCCINATE
     Dosage: UNK
     Dates: start: 20120829, end: 20120909
  4. LEVOFOLINATE [Concomitant]
     Active Substance: LEVOLEUCOVORIN CALCIUM
     Dosage: UNK
     Dates: start: 20120516, end: 20120815
  5. CAMPTO [Suspect]
     Active Substance: IRINOTECAN
     Indication: COLON CANCER METASTATIC
     Dosage: 200 MG, 1X/DAY (200 MG/BODY (154.7 MG/M2))
     Route: 041
     Dates: start: 20120516, end: 20120516
  6. PASIL [Concomitant]
     Active Substance: PAZUFLOXACIN MESILATE
     Dosage: UNK
     Dates: start: 20120903, end: 20120914
  7. PREDONINE [Concomitant]
     Active Substance: PREDNISOLONE
     Dosage: UNK
     Dates: start: 20120901, end: 20120914
  8. MEROPENEM. [Concomitant]
     Active Substance: MEROPENEM
     Dosage: UNK
     Dates: start: 20120829, end: 20120902
  9. 5 FU [Suspect]
     Active Substance: FLUOROURACIL
     Indication: COLON CANCER METASTATIC
     Dosage: 500 MG, UNK (DAY 1 BOLUS)
     Route: 040
     Dates: start: 20120516, end: 20120815
  10. CAMPTO [Suspect]
     Active Substance: IRINOTECAN
     Dosage: 150 MG, 1X/DAY (150 MG/BODY (116 MG/M2))
     Route: 041
     Dates: start: 20120613, end: 20120613
  11. CAMPTO [Suspect]
     Active Substance: IRINOTECAN
     Dosage: 150 MG, 1X/DAY
     Route: 041
     Dates: start: 20120627, end: 20120627
  12. CAMPTO [Suspect]
     Active Substance: IRINOTECAN
     Dosage: 100 MG, 1X/DAY (100 MG/BODY (77.3 MG/M2))
     Route: 041
     Dates: start: 20120718, end: 20120718
  13. CAMPTO [Suspect]
     Active Substance: IRINOTECAN
     Dosage: 100 MG, 1X/DAY
     Route: 041
     Dates: start: 20120801, end: 20120801
  14. 5 FU [Suspect]
     Active Substance: FLUOROURACIL
     Dosage: 3000 MG, UNK (DAY 1-2 CONTINUOUS)
     Route: 040
  15. ERBITUX [Suspect]
     Active Substance: CETUXIMAB
     Indication: COLON CANCER METASTATIC
     Dosage: 320 MG, CYCLIC (DAY 1, 2 WEEKS ARE 1 COURSE)
     Dates: start: 20120516, end: 20120815

REACTIONS (2)
  - Respiratory failure [Fatal]
  - Interstitial lung disease [Fatal]

NARRATIVE: CASE EVENT DATE: 2012
